FAERS Safety Report 9057717 (Version 1)
Quarter: 2013Q1

REPORT INFORMATION
  Report Type: Spontaneous
  Country: DK (occurrence: None)
  Receive Date: 20130117
  Receipt Date: 20130117
  Transmission Date: 20140127
  Serious: Yes (Other)
  Sender: FDA-Public Use
  Company Number: 2013MA000256

PATIENT
  Age: 68 Year
  Sex: Female

DRUGS (9)
  1. VINORELBINE INJECTION USP, 10MG/ML PACKAGED IN 10MG/ML (ATLLC) (VINORELBINE) [Suspect]
     Indication: PRODUCT USED FOR UNKNOWN INDICATION
  2. HERCEPTIN (NO PREF. NAME) [Suspect]
  3. TAXOTERE (DOCETAXEL) [Suspect]
  4. XELODA (CAPECITABINE) [Suspect]
  5. TYVERB (NO PREF. NAME) [Suspect]
  6. FASLODEX (FULVESTRANT) [Suspect]
  7. EPIRUBICIN (EPIRUBICIN) (EPIRUBICIN) [Suspect]
  8. AROMASIN (EXEMESTANE) [Suspect]
  9. ARIMIDEX (NO PREF. NAME) [Suspect]

REACTIONS (3)
  - Metastases to bone [None]
  - Metastases to liver [None]
  - Neoplasm progression [None]
